FAERS Safety Report 4388784-2 (Version None)
Quarter: 2004Q3

REPORT INFORMATION
  Report Type: 
  Country: None (occurrence: None)
  Receive Date: 20040701
  Receipt Date: 20040413
  Transmission Date: 20050211
  Serious: Yes (Hospitalization)
  Sender: FDA-Public Use
  Company Number: JP-MERCK-0404USA01507

PATIENT
  Age: 53 Year
  Sex: Male

DRUGS (7)
  1. ALLOPURINOL [Suspect]
     Indication: HYPERURICAEMIA
     Route: 048
     Dates: start: 20000306, end: 20030122
  2. ALLOPURINOL [Suspect]
     Route: 048
     Dates: start: 19970728, end: 20000305
  3. AMLODIPINE MALEATE [Concomitant]
     Indication: HYPERTENSION
     Route: 048
     Dates: start: 20020417, end: 20020430
  4. ATENOLOL [Concomitant]
     Indication: HYPERTENSION
     Route: 048
     Dates: start: 19961101
  5. ATENOLOL [Concomitant]
     Route: 048
     Dates: start: 19961209, end: 19981103
  6. ATENOLOL [Concomitant]
     Route: 048
     Dates: start: 19981104, end: 20040506
  7. COZAAR [Suspect]
     Indication: HYPERTENSION
     Route: 048
     Dates: start: 20020501, end: 20030122

REACTIONS (2)
  - EPISTAXIS [None]
  - IDIOPATHIC THROMBOCYTOPENIC PURPURA [None]
